FAERS Safety Report 10518269 (Version 1)
Quarter: 2014Q4

REPORT INFORMATION
  Report Type: Spontaneous
  Country: US (occurrence: None)
  Receive Date: 20141014
  Receipt Date: 20141014
  Transmission Date: 20150528
  Serious: Yes (Death)
  Sender: FDA-Public Use
  Company Number: None

PATIENT
  Age: 68 Year
  Sex: Male
  Weight: 56 kg

DRUGS (2)
  1. TAXOTERE [Suspect]
     Active Substance: DOCETAXEL
  2. CISPLATIN. [Suspect]
     Active Substance: CISPLATIN

REACTIONS (5)
  - Cardiac arrest [None]
  - Dyspnoea [None]
  - Infusion related reaction [None]
  - Unresponsive to stimuli [None]
  - Dysuria [None]

NARRATIVE: CASE EVENT DATE: 20141012
